FAERS Safety Report 7129804-1 (Version None)
Quarter: 2010Q4

REPORT INFORMATION
  Report Type: 
  Country: None (occurrence: None)
  Receive Date: 20101130
  Receipt Date: 20100816
  Transmission Date: 20110411
  Serious: Yes (Other)
  Sender: FDA-Public Use
  Company Number: US-AMGEN-QUU424171

PATIENT

DRUGS (5)
  1. NPLATE [Suspect]
     Indication: IDIOPATHIC THROMBOCYTOPENIC PURPURA
     Dosage: 10 A?G/KG, QWK
     Route: 058
     Dates: start: 20081023, end: 20100330
  2. SENNA [Concomitant]
  3. TERAZOSIN HCL [Concomitant]
  4. TRAMADOL HCL [Concomitant]
  5. LISINOPRIL [Concomitant]

REACTIONS (1)
  - DRUG INEFFECTIVE [None]
